FAERS Safety Report 10343475 (Version 2)
Quarter: 2014Q3

REPORT INFORMATION
  Report Type: Spontaneous
  Country: JP (occurrence: JP)
  Receive Date: 20140725
  Receipt Date: 20140918
  Transmission Date: 20150326
  Serious: Yes (Life-Threatening)
  Sender: FDA-Public Use
  Company Number: JP-GE HEALTHCARE MEDICAL DIAGNOSTICS-OMPQ-PR-1407S-0815

PATIENT
  Age: 63 Year
  Sex: Female
  Weight: 46 kg

DRUGS (10)
  1. OMNIPAQUE [Suspect]
     Active Substance: IOHEXOL
     Indication: DIAGNOSTIC PROCEDURE
  2. PLAVIX [Concomitant]
     Active Substance: CLOPIDOGREL BISULFATE
  3. KALIMATE [Concomitant]
     Active Substance: POLYSTYRENE SULFONIC ACID
  4. AROZINE [Concomitant]
  5. XYLOCAINE [Concomitant]
     Active Substance: LIDOCAINE HYDROCHLORIDE
     Dates: start: 20140715, end: 20140715
  6. HALCION [Concomitant]
     Active Substance: TRIAZOLAM
  7. OMNIPAQUE [Suspect]
     Active Substance: IOHEXOL
     Indication: SHUNT STENOSIS
     Route: 065
     Dates: start: 20140715, end: 20140715
  8. CALTAN [Concomitant]
     Active Substance: CALCIUM CARBONATE
  9. VASOLAN [Concomitant]
     Active Substance: VERAPAMIL HYDROCHLORIDE
  10. CINACALCET HYDROCHLORIDE [Concomitant]
     Active Substance: CINACALCET HYDROCHLORIDE

REACTIONS (2)
  - Anaphylactic shock [Recovered/Resolved]
  - Pulmonary oedema [Recovered/Resolved]

NARRATIVE: CASE EVENT DATE: 20140715
